FAERS Safety Report 9944816 (Version 1)
Quarter: 2014Q1

REPORT INFORMATION
  Report Type: Report from Study
  Country: US (occurrence: US)
  Receive Date: 20140303
  Receipt Date: 20140303
  Transmission Date: 20141002
  Serious: No
  Sender: FDA-Public Use
  Company Number: US-ABBVIE-13P-163-1055228-00

PATIENT
  Age: 54 Year
  Sex: Female

DRUGS (5)
  1. HUMIRA [Suspect]
     Indication: RHEUMATOID ARTHRITIS
     Route: 058
     Dates: start: 20120924
  2. HUMIRA [Suspect]
     Route: 058
     Dates: start: 20130211
  3. NAPROXEN [Concomitant]
     Indication: PAIN
     Dosage: BID AS NEEDED
  4. IBUPROFEN [Concomitant]
     Indication: PAIN
  5. NIFEDICAL [Concomitant]
     Indication: HYPERTENSION

REACTIONS (2)
  - Bronchitis [Recovering/Resolving]
  - Injection site bruising [Recovered/Resolved]
